FAERS Safety Report 10467833 (Version 1)
Quarter: 2014Q3

REPORT INFORMATION
  Report Type: Spontaneous
  Country: IN (occurrence: IN)
  Receive Date: 20140922
  Receipt Date: 20140922
  Transmission Date: 20150326
  Serious: Yes (Death, Other)
  Sender: FDA-Public Use
  Company Number: IN-ASTELLAS-2014US012967

PATIENT
  Age: 80 Year
  Sex: Female

DRUGS (1)
  1. ADVAGRAF [Suspect]
     Active Substance: TACROLIMUS
     Indication: GLOMERULONEPHRITIS MEMBRANOUS
     Route: 048
     Dates: end: 201408

REACTIONS (2)
  - Sepsis [Fatal]
  - Off label use [Fatal]

NARRATIVE: CASE EVENT DATE: 201408
